FAERS Safety Report 7580162-8 (Version None)
Quarter: 2011Q2

REPORT INFORMATION
  Report Type: 
  Country: None (occurrence: None)
  Receive Date: 20110629
  Receipt Date: 20110616
  Transmission Date: 20111010
  Serious: Yes (Hospitalization)
  Sender: FDA-Public Use
  Company Number: US-BAYER-200937774NA

PATIENT
  Age: 45 Year
  Sex: Female
  Weight: 63.492 kg

DRUGS (21)
  1. ZANTAC [Concomitant]
     Indication: ABDOMINAL PAIN UPPER
     Dosage: UNK
     Dates: start: 20051201
  2. TIZANIDINE HCL [Concomitant]
     Indication: MUSCLE RELAXANT THERAPY
     Dosage: UNK
     Dates: start: 20060501, end: 20061001
  3. ZANAFLEX [Concomitant]
     Dosage: UNK
     Dates: start: 20061101
  4. ZOLOFT [Concomitant]
  5. LEXAPRO [Concomitant]
     Indication: DEPRESSION
     Dosage: UNK
     Dates: start: 20061001, end: 20070401
  6. QUININE SULFATE [Concomitant]
  7. ALBUTEROL INHALER [Concomitant]
     Dosage: UNK
     Dates: start: 20060501
  8. MARIJUANA [Concomitant]
     Indication: CEREBRAL PALSY
     Dosage: UNK
     Dates: start: 20060101
  9. YASMIN [Suspect]
     Indication: PRODUCT USED FOR UNKNOWN INDICATION
  10. HYDROCODONE [Concomitant]
     Indication: PAIN
     Dosage: UNK
     Dates: start: 20050201, end: 20060701
  11. DIPHENOXYLATE [Concomitant]
     Indication: IRRITABLE BOWEL SYNDROME
     Dosage: UNK
     Dates: start: 20060601, end: 20060901
  12. LORAZEPAM [Concomitant]
     Indication: ANXIETY
     Dosage: UNK
     Dates: start: 20040101, end: 20070201
  13. YAZ [Suspect]
     Indication: MENORRHAGIA
  14. GABAPENTIN [Concomitant]
     Indication: ANTICONVULSANT DRUG LEVEL THERAPEUTIC
     Dosage: UNK
     Dates: start: 20050201, end: 20070401
  15. DICYCLOMINE [Concomitant]
     Indication: IRRITABLE BOWEL SYNDROME
     Dosage: UNK
     Dates: start: 20060701, end: 20060701
  16. RELAFEN [Concomitant]
     Indication: OSTEOARTHRITIS
     Dosage: UNK
     Dates: start: 20050401
  17. NEURONTIN [Concomitant]
     Dosage: UNK
     Dates: start: 20061107
  18. ZYRTEC [Concomitant]
     Dosage: UNK
     Dates: start: 20040101, end: 20070401
  19. LOESTRIN 1.5/30 [Concomitant]
     Dosage: UNK
     Dates: start: 20061111
  20. OXYCODONE HCL [Concomitant]
     Indication: PAIN
     Dosage: UNK
     Dates: start: 20060301, end: 20061101
  21. ATROPINE [Concomitant]
     Indication: IRRITABLE BOWEL SYNDROME
     Dosage: UNK
     Dates: start: 20060601, end: 20060901

REACTIONS (5)
  - PAIN [None]
  - PLEURAL EFFUSION [None]
  - ATELECTASIS [None]
  - PULMONARY EMBOLISM [None]
  - MENTAL DISORDER [None]
